FAERS Safety Report 9913272 (Version 1)
Quarter: 2014Q1

REPORT INFORMATION
  Report Type: Spontaneous
  Country: US (occurrence: None)
  Receive Date: 20140218
  Receipt Date: 20140218
  Transmission Date: 20141002
  Serious: Yes (Other)
  Sender: FDA-Public Use
  Company Number: None

PATIENT
  Age: 55 Year
  Sex: Female
  Weight: 78.5 kg

DRUGS (4)
  1. OFATUMUMAB (ARZERRA), 2000 MG [Suspect]
  2. RANITIDINE [Concomitant]
  3. DEXAMETHASONE [Concomitant]
  4. DIPHENHYDRAMINE [Concomitant]

REACTIONS (1)
  - Hypotension [None]
